FAERS Safety Report 9641458 (Version 1)
Quarter: 2013Q4

REPORT INFORMATION
  Report Type: Spontaneous
  Country: US (occurrence: None)
  Receive Date: 20131022
  Receipt Date: 20131022
  Transmission Date: 20140711
  Serious: No
  Sender: FDA-Public Use
  Company Number: None

PATIENT
  Age: 59 Year
  Sex: Male
  Weight: 95.26 kg

DRUGS (1)
  1. FINASTERIDE [Suspect]
     Route: 048
     Dates: start: 20130415, end: 20131021

REACTIONS (1)
  - Drug ineffective [None]
